FAERS Safety Report 17983214 (Version 2)
Quarter: 2023Q4

REPORT INFORMATION
  Report Type: Spontaneous
  Country: US (occurrence: US)
  Receive Date: 20200706
  Receipt Date: 20231010
  Transmission Date: 20240109
  Serious: No
  Sender: FDA-Public Use
  Company Number: US-SHIRE-US202021586

PATIENT
  Sex: Female
  Weight: 48 kg

DRUGS (10)
  1. HYQVIA [Suspect]
     Active Substance: HUMAN IMMUNOGLOBULIN G\HYALURONIDASE (HUMAN RECOMBINANT)
     Indication: Primary immunodeficiency syndrome
     Dosage: 75 MILLILITER
     Route: 058
     Dates: start: 20200627, end: 20200627
  2. HYQVIA [Suspect]
     Active Substance: HUMAN IMMUNOGLOBULIN G\HYALURONIDASE (HUMAN RECOMBINANT)
     Dosage: 125 MILLILITER
     Route: 058
  3. FIRAZYR [Suspect]
     Active Substance: ICATIBANT ACETATE
     Indication: Hereditary angioedema
     Dosage: 30 MILLIGRAM
     Route: 058
  4. FIRAZYR [Suspect]
     Active Substance: ICATIBANT ACETATE
     Indication: Hereditary angioedema
     Dosage: 30 MILLIGRAM
     Route: 058
  5. CUVITRU [Suspect]
     Active Substance: HUMAN IMMUNOGLOBULIN G
     Indication: Primary immunodeficiency syndrome
     Dosage: UNK
     Route: 065
  6. CUVITRU [Suspect]
     Active Substance: HUMAN IMMUNOGLOBULIN G
     Indication: Hypogammaglobulinaemia
  7. ALLEGRA [Concomitant]
     Active Substance: FEXOFENADINE HYDROCHLORIDE
     Indication: Hypersensitivity
     Dates: start: 20200325
  8. PEPCID [Concomitant]
     Active Substance: FAMOTIDINE
     Indication: Hypersensitivity
     Dates: start: 20200325
  9. DYMISTA [Concomitant]
     Active Substance: AZELASTINE HYDROCHLORIDE\FLUTICASONE PROPIONATE
     Indication: Hypersensitivity
     Dates: start: 20200325
  10. XYZAL [Concomitant]
     Active Substance: LEVOCETIRIZINE DIHYDROCHLORIDE
     Dosage: UNK
     Route: 065

REACTIONS (4)
  - Subcutaneous drug absorption impaired [Unknown]
  - Therapeutic response shortened [Unknown]
  - Polymers allergy [Unknown]
  - Infusion site pain [Unknown]
